FAERS Safety Report 19392214 (Version 1)
Quarter: 2021Q2

REPORT INFORMATION
  Report Type: Spontaneous
  Country: GB (occurrence: GB)
  Receive Date: 20210609
  Receipt Date: 20210609
  Transmission Date: 20210717
  Serious: Yes (Other)
  Sender: FDA-Public Use
  Company Number: GB-AMGEN-GBRSP2021086892

PATIENT
  Age: 39 Year
  Sex: Male
  Weight: 90 kg

DRUGS (7)
  1. COVID?19 VACCINE [Concomitant]
     Dosage: UNK
     Dates: start: 20210131
  2. COVID?19 VACCINE [Concomitant]
     Dosage: UNK
     Dates: start: 20210418
  3. FEXOFENADINE [Concomitant]
     Active Substance: FEXOFENADINE HYDROCHLORIDE
     Dosage: UNK
     Dates: start: 20180829
  4. AMGEVITA [Suspect]
     Active Substance: ADALIMUMAB
     Indication: PSORIASIS
     Dosage: 40 MILLIGRAM, Q2WK
     Route: 065
     Dates: start: 20190327
  5. SYNALAR [Concomitant]
     Active Substance: FLUOCINOLONE ACETONIDE
     Dosage: UNK
     Dates: start: 20170829
  6. CAPASAL [Concomitant]
     Dosage: UNK
     Dates: start: 20180829
  7. ZEROBASE [PARAFFIN] [Concomitant]
     Dosage: UNK
     Dates: start: 20180829

REACTIONS (1)
  - SARS-CoV-2 test positive [Recovered/Resolved]

NARRATIVE: CASE EVENT DATE: 20201230
